FAERS Safety Report 7812329 (Version 2)
Quarter: 2012Q4

REPORT INFORMATION
  Report Type: 
  Country: PT (occurrence: PT)
  Receive Date: 20110215
  Receipt Date: 20121029
  Transmission Date: 20130627
  Serious: Yes (Other)
  Sender: FDA-Public Use
  Company Number: PT-JNJFOC-20100200577

PATIENT
  Sex: Female
  Weight: 60 kg

DRUGS (7)
  1. ETRAVIRINE [Suspect]
     Indication: HIV INFECTION
     Route: 048
  2. ETRAVIRINE [Suspect]
     Indication: HIV INFECTION
     Route: 048
     Dates: start: 20091126, end: 20091210
  3. RALTEGRAVIR [Concomitant]
     Indication: HIV INFECTION
     Route: 048
     Dates: start: 20091127, end: 20091210
  4. TRUVADA [Concomitant]
     Indication: HIV INFECTION
     Dates: start: 20091127
  5. AZT [Concomitant]
  6. CLINDAMYCIN [Concomitant]
     Dates: start: 20100605, end: 20100617
  7. BETAMETHASONE [Concomitant]
     Dates: start: 20100605, end: 20100605

REACTIONS (2)
  - Premature delivery [Recovered/Resolved]
  - Exposure during pregnancy [Recovered/Resolved]
